FAERS Safety Report 10544223 (Version 4)
Quarter: 2014Q4

REPORT INFORMATION
  Report Type: Spontaneous
  Country: JP (occurrence: None)
  Receive Date: 20141023
  Receipt Date: 20141031
  Transmission Date: 20150529
  Serious: Yes (Other)
  Sender: FDA-Public Use
  Company Number: ADR-2014-01953

PATIENT
  Age: 43 Year
  Sex: Male

DRUGS (1)
  1. GABALON [Suspect]
     Active Substance: BACLOFEN
     Dates: start: 20131004

REACTIONS (4)
  - Implant site swelling [None]
  - Implant site infection [None]
  - Neoplasm [None]
  - Implant site abscess [None]

NARRATIVE: CASE EVENT DATE: 20141010
